FAERS Safety Report 11914613 (Version 1)
Quarter: 2016Q1

REPORT INFORMATION
  Report Type: Spontaneous
  Country: AL (occurrence: AL)
  Receive Date: 20160113
  Receipt Date: 20160113
  Transmission Date: 20160526
  Serious: Yes (Other)
  Sender: FDA-Public Use
  Company Number: AL-PFIZER INC-2016004624

PATIENT
  Age: 78 Year
  Sex: Female

DRUGS (2)
  1. LATANOPROST. [Suspect]
     Active Substance: LATANOPROST
     Indication: OPEN ANGLE GLAUCOMA
     Dosage: UNK, 1X/DAY
     Route: 061
  2. BRINZOLAMIDE [Suspect]
     Active Substance: BRINZOLAMIDE
     Indication: OPEN ANGLE GLAUCOMA
     Dosage: UNK, 2X/DAY
     Route: 061

REACTIONS (7)
  - Visual acuity reduced [Recovering/Resolving]
  - Blindness [Not Recovered/Not Resolved]
  - Intraocular pressure increased [Recovered/Resolved]
  - Headache [Unknown]
  - Eye pain [Recovered/Resolved]
  - Conjunctival hyperaemia [Unknown]
  - Erythema [Recovered/Resolved]
